FAERS Safety Report 11174067 (Version 2)
Quarter: 2015Q3

REPORT INFORMATION
  Report Type: Spontaneous
  Country: US (occurrence: US)
  Receive Date: 20150609
  Receipt Date: 20150715
  Transmission Date: 20151125
  Serious: Yes (Hospitalization, Other)
  Sender: FDA-Public Use
  Company Number: US-PFIZER INC-2015190215

PATIENT
  Age: 49 Year
  Sex: Male
  Weight: 85.26 kg

DRUGS (4)
  1. REVATIO [Suspect]
     Active Substance: SILDENAFIL CITRATE
     Indication: PULMONARY ARTERIAL HYPERTENSION
     Dosage: 20 MG, 3X/DAY (150MG 4X/D)
  2. PRAZOSIN HCL [Concomitant]
     Active Substance: PRAZOSIN HYDROCHLORIDE
     Dosage: UNK
  3. BUPROPION HCL [Concomitant]
     Active Substance: BUPROPION HYDROCHLORIDE
     Dosage: 300 MG, 1X/DAY
  4. LOSARTAN POTASSIUM AND HYDROCHLOROTHIAZIDE [Suspect]
     Active Substance: HYDROCHLOROTHIAZIDE\LOSARTAN POTASSIUM
     Indication: HYPERTENSION
     Dosage: 25 MG, 2X/DAY

REACTIONS (6)
  - Vomiting [Not Recovered/Not Resolved]
  - Gastric infection [Unknown]
  - Folliculitis [Not Recovered/Not Resolved]
  - Malaise [Not Recovered/Not Resolved]
  - Influenza like illness [Unknown]
  - Depressed mood [Not Recovered/Not Resolved]

NARRATIVE: CASE EVENT DATE: 201504
